FAERS Safety Report 6207892-4 (Version None)
Quarter: 2009Q2

REPORT INFORMATION
  Report Type: 
  Country: None (occurrence: None)
  Receive Date: 20090529
  Receipt Date: 20090522
  Transmission Date: 20091009
  Serious: Yes (Other)
  Sender: FDA-Public Use
  Company Number: GB-TEVA-195816ISR

PATIENT
  Sex: Female

DRUGS (2)
  1. DILTIAZEM [Suspect]
     Route: 048
  2. DONEPEZIL HYDROCHLORIDE [Suspect]
     Route: 048

REACTIONS (2)
  - ACUTE CORONARY SYNDROME [None]
  - FALL [None]
